FAERS Safety Report 13240805 (Version 1)
Quarter: 2017Q1

REPORT INFORMATION
  Report Type: Spontaneous
  Country: FR (occurrence: FR)
  Receive Date: 20170216
  Receipt Date: 20170216
  Transmission Date: 20170428
  Serious: Yes (Hospitalization, Other)
  Sender: FDA-Public Use
  Company Number: FR-KNIGHT THERAPEUTICS (USA) INC.-1063200

PATIENT
  Age: 70 Year
  Sex: Male

DRUGS (3)
  1. LAMISIL [Concomitant]
     Active Substance: TERBINAFINE HYDROCHLORIDE
     Route: 065
     Dates: start: 20140418
  2. VFEND [Suspect]
     Active Substance: VORICONAZOLE
     Indication: SCEDOSPORIUM INFECTION
     Route: 065
     Dates: start: 20140418
  3. IMPAVIDO [Concomitant]
     Active Substance: MILTEFOSINE
     Route: 048
     Dates: start: 20140818

REACTIONS (4)
  - Bowen^s disease [Recovered/Resolved with Sequelae]
  - Macular oedema [Recovered/Resolved]
  - Visual impairment [Recovered/Resolved]
  - Off label use [None]

NARRATIVE: CASE EVENT DATE: 20140929
